FAERS Safety Report 7315421-7 (Version None)
Quarter: 2011Q1

REPORT INFORMATION
  Report Type: 
  Country: None (occurrence: None)
  Receive Date: 20110225
  Receipt Date: 20110218
  Transmission Date: 20110831
  Serious: Yes (Other)
  Sender: FDA-Public Use
  Company Number: A0915309A

PATIENT
  Sex: Female

DRUGS (6)
  1. ADVAIR DISKUS 100/50 [Suspect]
     Indication: PRODUCT USED FOR UNKNOWN INDICATION
     Route: 055
  2. OXYGEN [Concomitant]
  3. DIABETES MEDICATION [Suspect]
     Indication: DIABETES MELLITUS
     Route: 048
  4. MAXAIR [Suspect]
     Indication: PRODUCT USED FOR UNKNOWN INDICATION
     Dosage: 200MCG UNKNOWN
     Route: 055
  5. SPIRIVA [Suspect]
     Indication: PRODUCT USED FOR UNKNOWN INDICATION
     Route: 055
  6. ALBUTEROL SULFATE [Suspect]
     Indication: PRODUCT USED FOR UNKNOWN INDICATION
     Route: 055

REACTIONS (4)
  - INTRACRANIAL ANEURYSM [None]
  - CHRONIC OBSTRUCTIVE PULMONARY DISEASE [None]
  - MEMORY IMPAIRMENT [None]
  - DIZZINESS [None]
